FAERS Safety Report 16115000 (Version 2)
Quarter: 2019Q2

REPORT INFORMATION
  Report Type: Spontaneous
  Country: FR (occurrence: FR)
  Receive Date: 20190325
  Receipt Date: 20190401
  Transmission Date: 20190711
  Serious: Yes (Hospitalization)
  Sender: FDA-Public Use
  Company Number: FR-PFIZER INC-2019123764

PATIENT
  Sex: Male
  Weight: 61 kg

DRUGS (9)
  1. RITUXIMAB. [Concomitant]
     Active Substance: RITUXIMAB
     Dosage: 1G PER CURE
     Route: 041
     Dates: start: 20180728, end: 20180813
  2. KARDEGIC [Concomitant]
     Active Substance: ASPIRIN DL-LYSINE
     Indication: PERIPHERAL ARTERIAL OCCLUSIVE DISEASE
     Dosage: 160 MG, 1X/DAY
     Route: 048
  3. IMUREL [AZATHIOPRINE] [Concomitant]
     Active Substance: AZATHIOPRINE
     Indication: INTERSTITIAL LUNG DISEASE
     Dosage: 100 MG, 1X/DAY
     Route: 048
     Dates: start: 20170710, end: 20180205
  4. SOLUPRED [METHYLPREDNISOLONE SODIUM SUCCINATE] [Concomitant]
     Active Substance: METHYLPREDNISOLONE SODIUM SUCCINATE
     Indication: INTERSTITIAL LUNG DISEASE
     Dosage: 30 MG, 1X/DAY
     Route: 048
     Dates: start: 20170119
  5. CISPLATINE TEVA [Suspect]
     Active Substance: CISPLATIN
     Indication: GENITAL CANCER MALE
     Dosage: 25 MG/M2, EVERY 4 WEEKS
     Route: 041
     Dates: start: 20160409, end: 20160630
  6. PACLITAXEL. [Suspect]
     Active Substance: PACLITAXEL
     Indication: GENITAL CANCER MALE
     Dosage: 175 MG/M2, EVERY 4 WEEKS
     Route: 041
     Dates: start: 20160409, end: 20160630
  7. IFOSFAMIDE. [Suspect]
     Active Substance: IFOSFAMIDE
     Indication: GENITAL CANCER MALE
     Dosage: 1200 MG/M2, EVERY 4 WEEKS
     Route: 041
     Dates: start: 20160409, end: 20160630
  8. LASILIX [FUROSEMIDE] [Concomitant]
     Active Substance: FUROSEMIDE
     Indication: OEDEMA PERIPHERAL
     Dosage: 20 MG, 1X/DAY
     Route: 048
     Dates: start: 20180730
  9. TAHOR [Concomitant]
     Active Substance: ATORVASTATIN CALCIUM
     Indication: DYSLIPIDAEMIA
     Dosage: 10 MG, 1X/DAY
     Route: 048

REACTIONS (2)
  - Interstitial lung disease [Not Recovered/Not Resolved]
  - Raynaud^s phenomenon [Not Recovered/Not Resolved]

NARRATIVE: CASE EVENT DATE: 20160601
